FAERS Safety Report 18301689 (Version 1)
Quarter: 2020Q3

REPORT INFORMATION
  Report Type: Spontaneous
  Country: FR (occurrence: FR)
  Receive Date: 20200923
  Receipt Date: 20200923
  Transmission Date: 20201103
  Serious: Yes (Other)
  Sender: FDA-Public Use
  Company Number: FR-TEVA-2020-FR-1829319

PATIENT
  Age: 69 Year
  Sex: Female

DRUGS (2)
  1. SOTALOL (CHLORHYDRATE DE) [Suspect]
     Active Substance: SOTALOL
     Indication: PRODUCT USED FOR UNKNOWN INDICATION
     Dosage: 2 DOSAGE FORMS
     Route: 048
     Dates: start: 20200528, end: 20200716
  2. PROPYLEX 50 MG, COMPRIME [Suspect]
     Active Substance: PROPYLTHIOURACIL
     Indication: PRODUCT USED FOR UNKNOWN INDICATION
     Dosage: 2 DOSAGE FORMS
     Route: 048
     Dates: start: 20200526, end: 20200716

REACTIONS (4)
  - Neutropenia [Not Recovered/Not Resolved]
  - Aspartate aminotransferase increased [Not Recovered/Not Resolved]
  - Alanine aminotransferase increased [Not Recovered/Not Resolved]
  - Hypertransaminasaemia [Not Recovered/Not Resolved]

NARRATIVE: CASE EVENT DATE: 20200708
